FAERS Safety Report 5170309-5 (Version None)
Quarter: 2006Q4

REPORT INFORMATION
  Report Type: 
  Country: None (occurrence: None)
  Receive Date: 20061204
  Receipt Date: 20061117
  Transmission Date: 20070319
  Serious: Yes (Hospitalization)
  Sender: FDA-Public Use
  Company Number: 233159

PATIENT
  Age: 78 Year
  Sex: Female

DRUGS (1)
  1. HERCEPTIN [Suspect]
     Indication: DRUG USE FOR UNKNOWN INDICATION
     Dosage: 200 MG, QD, INTRAVENOUS
     Route: 042
     Dates: start: 20061103, end: 20061108

REACTIONS (1)
  - CEREBRAL ISCHAEMIA [None]
